FAERS Safety Report 5591392-9 (Version None)
Quarter: 2008Q1

REPORT INFORMATION
  Report Type: 
  Country: None (occurrence: None)
  Receive Date: 20080115
  Receipt Date: 20080104
  Transmission Date: 20080703
  Serious: Yes (Other)
  Sender: FDA-Public Use
  Company Number: US-ASTRAZENECA-2007UW19771

PATIENT
  Age: 503 Month
  Sex: Male
  Weight: 99.5 kg

DRUGS (9)
  1. SEROQUEL [Suspect]
     Indication: BIPOLAR DISORDER
     Route: 048
     Dates: start: 20040201, end: 20050801
  2. ABILIFY [Concomitant]
     Route: 048
  3. ZYPREXA [Concomitant]
     Route: 048
     Dates: start: 19990101, end: 20010101
  4. TRAZODONE HCL [Concomitant]
     Route: 048
  5. CITALOPRAM [Concomitant]
     Route: 048
  6. CHROMIUM [Concomitant]
     Route: 048
  7. HYDROXYZINEPAN [Concomitant]
  8. METHADONE HCL [Concomitant]
  9. PICOLINARE [Concomitant]

REACTIONS (2)
  - DIABETES MELLITUS [None]
  - NEUROPATHY PERIPHERAL [None]
